FAERS Safety Report 7052856-4 (Version None)
Quarter: 2010Q4

REPORT INFORMATION
  Report Type: 
  Country: None (occurrence: None)
  Receive Date: 20101019
  Receipt Date: 20101006
  Transmission Date: 20110411
  Serious: Yes (Hospitalization)
  Sender: FDA-Public Use
  Company Number: DE-MYLANLABS-2009S1006678

PATIENT
  Age: 80 Year
  Sex: Male
  Weight: 80 kg

DRUGS (8)
  1. ENALAPRIL MALEATE [Suspect]
     Indication: HYPERTENSION
     Route: 048
     Dates: start: 19970101, end: 20080704
  2. ARCOXIA [Interacting]
     Indication: OSTEOLYSIS
     Route: 048
     Dates: start: 20080601, end: 20080704
  3. TRIAMTEREN [Interacting]
     Indication: HYPERTENSION
     Route: 048
     Dates: start: 20040101, end: 20080704
  4. ISOSORBIDE DINITRATE [Concomitant]
     Indication: ATRIAL FIBRILLATION
     Route: 048
     Dates: start: 19970101
  5. BISOPROLOL [Concomitant]
     Indication: HYPERTENSION
     Route: 048
     Dates: start: 19970101
  6. SIMVASTATIN [Concomitant]
     Indication: HYPERLIPIDAEMIA
     Route: 048
     Dates: start: 19970101
  7. FALITHROM [Concomitant]
     Indication: ATRIAL FIBRILLATION
     Dosage: LAUT PLAN
     Route: 048
     Dates: start: 20040101, end: 20080704
  8. PK-MERZ [Concomitant]
     Indication: PARKINSON'S DISEASE
     Route: 048

REACTIONS (2)
  - DRUG INTERACTION [None]
  - RENAL FAILURE ACUTE [None]
